FAERS Safety Report 14568763 (Version 1)
Quarter: 2018Q1

REPORT INFORMATION
  Report Type: Report from Study
  Country: AU (occurrence: AU)
  Receive Date: 20180223
  Receipt Date: 20180223
  Transmission Date: 20180509
  Serious: Yes (Hospitalization, Other)
  Sender: FDA-Public Use
  Company Number: AU-REGENERON PHARMACEUTICALS, INC.-2017-29744

PATIENT

DRUGS (2)
  1. EYLEA [Suspect]
     Active Substance: AFLIBERCEPT
     Indication: NEOVASCULAR AGE-RELATED MACULAR DEGENERATION
     Dosage: RIGHT EYE, DOSE, FREQUENCY AND TOTAL OF DOSES PRIOR TO EVENT IS UNKNONW.
     Route: 031
     Dates: start: 201511
  2. EYLEA [Suspect]
     Active Substance: AFLIBERCEPT
     Dosage: LEFT EYE, DOSE, FREQUENCY AND TOTAL OF DOSES PRIOR TO EVENT IS UNKNONW.
     Route: 031
     Dates: start: 201609

REACTIONS (3)
  - Macular fibrosis [Recovered/Resolved]
  - Visual impairment [Unknown]
  - Cataract [Not Recovered/Not Resolved]

NARRATIVE: CASE EVENT DATE: 201707
